FAERS Safety Report 9508643 (Version 4)
Quarter: 2023Q2

REPORT INFORMATION
  Report Type: Spontaneous
  Country: IT (occurrence: IT)
  Receive Date: 20130909
  Receipt Date: 20230406
  Transmission Date: 20230722
  Serious: Yes (Life-Threatening, Hospitalization, Other)
  Sender: FDA-Public Use
  Company Number: IT-PFIZER INC-2013256118

PATIENT
  Age: 28 Year
  Sex: Male

DRUGS (2)
  1. LEVOFLOXACIN [Suspect]
     Active Substance: LEVOFLOXACIN
     Dosage: 500 MG
     Route: 048
  2. PIPERACILLIN SODIUM\TAZOBACTAM SODIUM [Suspect]
     Active Substance: PIPERACILLIN SODIUM\TAZOBACTAM SODIUM
     Dosage: 4.5 MG
     Route: 042

REACTIONS (8)
  - Kounis syndrome [Unknown]
  - Acute myocardial infarction [Recovered/Resolved]
  - Urticaria [Unknown]
  - Pruritus [Unknown]
  - Electrocardiogram ST segment elevation [Recovered/Resolved]
  - Stridor [Unknown]
  - Chest pain [Unknown]
  - Angioedema [Unknown]
